FAERS Safety Report 7008472-3 (Version None)
Quarter: 2010Q3

REPORT INFORMATION
  Report Type: 
  Country: None (occurrence: None)
  Receive Date: 20100922
  Receipt Date: 20100915
  Transmission Date: 20110219
  Serious: Yes (Other)
  Sender: FDA-Public Use
  Company Number: DE-ABBOTT-10P-062-0671350-00

PATIENT
  Age: 46 Year
  Sex: Male

DRUGS (2)
  1. HUMIRA [Suspect]
     Indication: RHEUMATOID ARTHRITIS
  2. GLUKOCORTICOIDS [Concomitant]
     Indication: RHEUMATOID ARTHRITIS
     Dosage: INCREASED TO 5 MG ON 10 JUNE 2010 (ONCE PER DAY)

REACTIONS (1)
  - TENDON RUPTURE [None]
